FAERS Safety Report 8887239 (Version 3)
Quarter: 2013Q2

REPORT INFORMATION
  Report Type: Report from Study
  Country: DE (occurrence: DE)
  Receive Date: 20121105
  Receipt Date: 20130627
  Transmission Date: 20140414
  Serious: Yes (Hospitalization)
  Sender: FDA-Public Use
  Company Number: DE-ABBOTT-12P-062-1001869-00

PATIENT
  Age: 26 Year
  Sex: Male
  Weight: 74 kg

DRUGS (10)
  1. HUMIRA [Suspect]
     Indication: CROHN^S DISEASE
     Route: 058
     Dates: start: 20090129, end: 201110
  2. HUMIRA [Suspect]
     Route: 058
     Dates: start: 201110
  3. XIFAXAN [Concomitant]
     Indication: CROHN^S DISEASE
     Dates: start: 20110922, end: 20111002
  4. CIPRALEX [Concomitant]
     Indication: DEPRESSION
     Dates: start: 20090119
  5. TIORFAN [Concomitant]
     Indication: DIARRHOEA
     Dosage: UP TO 4 TIMES A DAY AS NEEDED
     Dates: start: 20090119
  6. AZATHIOPRINE [Concomitant]
     Indication: CROHN^S DISEASE
     Dates: start: 200901, end: 200901
  7. AZATHIOPRINE [Concomitant]
  8. PAROXETIN [Concomitant]
     Indication: DEPRESSION
     Dates: start: 20101229
  9. NEXIUM [Concomitant]
     Indication: GASTROOESOPHAGEAL REFLUX DISEASE
     Dates: start: 201012
  10. FOLSAN [Concomitant]
     Indication: MACROCYTOSIS
     Dates: start: 20101027

REACTIONS (2)
  - Crohn^s disease [Recovered/Resolved]
  - Crohn^s disease [Recovered/Resolved]
